FAERS Safety Report 5677120-7 (Version None)
Quarter: 2008Q1

REPORT INFORMATION
  Report Type: 
  Country: None (occurrence: None)
  Receive Date: 20080324
  Receipt Date: 20080313
  Transmission Date: 20080703
  Serious: Yes (Other)
  Sender: FDA-Public Use
  Company Number: HQWYE204817JUL04

PATIENT
  Sex: Female

DRUGS (3)
  1. PREMARIN [Suspect]
     Indication: OESTROGEN REPLACEMENT THERAPY
     Dosage: UNKNOWN
     Route: 048
     Dates: start: 19950216
  2. PREMPRO [Suspect]
     Dosage: UNKNOWN
     Route: 048
     Dates: start: 19960209, end: 19971030
  3. MEDROXYPROGESTERONE ACETATE [Suspect]
     Indication: OESTROGEN REPLACEMENT THERAPY
     Dosage: UNKNOWN
     Dates: start: 19950227, end: 19950911

REACTIONS (1)
  - BREAST CANCER RECURRENT [None]
